FAERS Safety Report 24377310 (Version 1)
Quarter: 2024Q3

REPORT INFORMATION
  Report Type: Spontaneous
  Country: US (occurrence: None)
  Receive Date: 20240927
  Receipt Date: 20240927
  Transmission Date: 20241016
  Serious: Yes (Hospitalization)
  Sender: Public
  Company Number: None

PATIENT
  Age: 78 Year
  Sex: Male
  Weight: 85 kg

DRUGS (1)
  1. DABIGATRAN ETEXILATE [Suspect]
     Active Substance: DABIGATRAN ETEXILATE
     Indication: Atrial fibrillation
     Dosage: 150.00 MG TWICE A DAY ORAL ?
     Route: 048
     Dates: start: 20240109, end: 20240112

REACTIONS (3)
  - Cerebrovascular accident [None]
  - Cerebral artery embolism [None]
  - Embolic stroke [None]

NARRATIVE: CASE EVENT DATE: 20240112
